FAERS Safety Report 19139470 (Version 1)
Quarter: 2021Q2

REPORT INFORMATION
  Report Type: Spontaneous
  Country: US (occurrence: US)
  Receive Date: 20210414
  Receipt Date: 20210414
  Transmission Date: 20210717
  Serious: Yes (Other)
  Sender: FDA-Public Use
  Company Number: None

PATIENT
  Age: 64 Year
  Sex: Male
  Weight: 69.4 kg

DRUGS (12)
  1. VITAMIN E [Concomitant]
     Active Substance: .ALPHA.-TOCOPHEROL
  2. UROCIT [Concomitant]
  3. VITAMIN C [Concomitant]
     Active Substance: ASCORBIC ACID
  4. ZONEGRAN [Concomitant]
     Active Substance: ZONISAMIDE
  5. HYDRODIURIL [Concomitant]
     Active Substance: HYDROCHLOROTHIAZIDE
  6. PAXIL [Concomitant]
     Active Substance: PAROXETINE HYDROCHLORIDE
  7. ALLERGA [Concomitant]
  8. VIMPAT [Suspect]
     Active Substance: LACOSAMIDE
     Indication: SEIZURE
     Dosage: ?          QUANTITY:1 PILL;?
     Route: 048
  9. TRILEPTAL [Concomitant]
     Active Substance: OXCARBAZEPINE
  10. MVI [Concomitant]
     Active Substance: VITAMINS
  11. SAW PALMETTO [Concomitant]
     Active Substance: HERBALS\SAW PALMETTO
  12. CALCIUM CIRTATE [Concomitant]

REACTIONS (7)
  - Hyponatraemia [None]
  - Electrocardiogram T wave abnormal [None]
  - Chest X-ray abnormal [None]
  - Weight increased [None]
  - Therapy change [None]
  - Oedema peripheral [None]
  - Dyspnoea [None]

NARRATIVE: CASE EVENT DATE: 20210401
